FAERS Safety Report 6811530-7 (Version None)
Quarter: 2010Q3

REPORT INFORMATION
  Report Type: 
  Country: None (occurrence: None)
  Receive Date: 20100701
  Receipt Date: 20100303
  Transmission Date: 20110219
  Serious: Yes (Other)
  Sender: FDA-Public Use
  Company Number: US-ASTRAZENECA-2009SE16594

PATIENT
  Age: 10579 Day
  Sex: Male
  Weight: 100.7 kg

DRUGS (9)
  1. SEROQUEL [Suspect]
     Route: 048
     Dates: start: 20030125
  2. DEPAKOTE [Concomitant]
     Dates: start: 20030125
  3. TRICOR [Concomitant]
     Dates: start: 20030203
  4. ACETAMINOPHEN AND HYDROCODONE BITARTRATE [Concomitant]
     Dosage: 500
     Dates: start: 20030108
  5. NEURONTIN [Concomitant]
     Dosage: 300 TO 400 MG
     Dates: start: 20030115
  6. BUSPIRONE HCL [Concomitant]
     Dates: start: 20030115
  7. CLONAZEPAM [Concomitant]
     Dates: start: 20021122
  8. OXYCODONE HCL [Concomitant]
     Dates: start: 20080808
  9. OXYCODONE HCL [Concomitant]
     Dates: start: 20080808

REACTIONS (2)
  - DIABETIC NEUROPATHY [None]
  - TYPE 2 DIABETES MELLITUS [None]
